FAERS Safety Report 16753521 (Version 1)
Quarter: 2019Q3

REPORT INFORMATION
  Report Type: Report from Study
  Country: None (occurrence: BR)
  Receive Date: 20190829
  Receipt Date: 20190829
  Transmission Date: 20191005
  Serious: Yes (Hospitalization)
  Sender: FDA-Public Use
  Company Number: BR-ABBVIE-19K-020-2903824-00

PATIENT
  Sex: Female
  Weight: 48 kg

DRUGS (1)
  1. HUMIRA [Suspect]
     Active Substance: ADALIMUMAB
     Indication: PSORIATIC ARTHROPATHY
     Route: 058
     Dates: end: 2019

REACTIONS (16)
  - Arthropod bite [Unknown]
  - Neck pain [Unknown]
  - Abdominal pain [Unknown]
  - Asthenia [Unknown]
  - Inflammation of wound [Unknown]
  - Therapeutic response shortened [Unknown]
  - Pruritus allergic [Not Recovered/Not Resolved]
  - Heart rate increased [Unknown]
  - Pain [Not Recovered/Not Resolved]
  - Cardiac disorder [Unknown]
  - Hypersensitivity [Unknown]
  - Musculoskeletal stiffness [Unknown]
  - White blood cell count increased [Unknown]
  - Pyrexia [Unknown]
  - Burning sensation [Not Recovered/Not Resolved]
  - Blister [Not Recovered/Not Resolved]

NARRATIVE: CASE EVENT DATE: 2019
